FAERS Safety Report 9127518 (Version 1)
Quarter: 2013Q1

REPORT INFORMATION
  Report Type: Spontaneous
  Country: BR (occurrence: BR)
  Receive Date: 20130122
  Receipt Date: 20130122
  Transmission Date: 20140127
  Serious: Yes (Other)
  Sender: FDA-Public Use
  Company Number: PHHY2013BR005023

PATIENT
  Sex: Male

DRUGS (2)
  1. TEGRETOL CR [Suspect]
     Dosage: 1 DF, UNK
  2. TEGRETOL [Suspect]
     Dosage: 1 DF, UNK

REACTIONS (4)
  - Sensory loss [Unknown]
  - Brain hypoxia [Unknown]
  - Eye movement disorder [Unknown]
  - Drug administration error [Unknown]
